FAERS Safety Report 8846989 (Version 2)
Quarter: 2012Q4

REPORT INFORMATION
  Report Type: 
  Country: US (occurrence: US)
  Receive Date: 20121018
  Receipt Date: 20121123
  Transmission Date: 20130627
  Serious: Yes (Hospitalization)
  Sender: FDA-Public Use
  Company Number: US-MERCK-1210USA006589

PATIENT
  Age: 59 Year
  Sex: Female

DRUGS (9)
  1. JANUMET [Suspect]
     Indication: DIABETES MELLITUS
     Dosage: 50/1000mg, bid
     Route: 048
  2. VYTORIN [Concomitant]
  3. PRILOSEC [Concomitant]
  4. HUMALOG [Concomitant]
  5. METHIMAZOLE [Concomitant]
  6. REQUIP [Concomitant]
  7. EFFEXOR [Concomitant]
  8. ALPRENOLOL [Concomitant]
  9. FENOFIBRATE [Concomitant]

REACTIONS (2)
  - Pancreatitis [Recovered/Resolved]
  - Renal failure [Recovered/Resolved]
